FAERS Safety Report 7777004-4 (Version None)
Quarter: 2011Q3

REPORT INFORMATION
  Report Type: 
  Country: None (occurrence: None)
  Receive Date: 20110926
  Receipt Date: 20110926
  Transmission Date: 20111222
  Serious: Yes (Other)
  Sender: FDA-Public Use
  Company Number: None

PATIENT
  Sex: Male
  Weight: 90.718 kg

DRUGS (1)
  1. ALFUZOSIN HCL [Suspect]
     Indication: PROSTATOMEGALY
     Dosage: I TABLET
     Route: 048
     Dates: start: 20110919, end: 20110921

REACTIONS (5)
  - MICTURITION URGENCY [None]
  - PRODUCT QUALITY ISSUE [None]
  - DYSURIA [None]
  - BLADDER DISCOMFORT [None]
  - URINARY RETENTION [None]
